FAERS Safety Report 9828204 (Version 1)
Quarter: 2013Q4

REPORT INFORMATION
  Report Type: Spontaneous
  Country: US (occurrence: None)
  Receive Date: 20131120
  Receipt Date: 20131120
  Transmission Date: 20140711
  Serious: Yes (Other)
  Sender: FDA-Public Use
  Company Number: 1000047402

PATIENT
  Age: 81 Year
  Sex: Female

DRUGS (3)
  1. VIIBRYD [Suspect]
     Indication: DEPRESSION
     Dosage: 10MG (10 MG, 1 IN 1 D), ORAL
     Route: 048
     Dates: start: 20130711, end: 20130717
  2. VIIBRYD [Suspect]
     Indication: DEPRESSION
     Dosage: 40MG (1 IN 1 D), ORAL
     Route: 048
     Dates: start: 20130725, end: 20130728
  3. FOSINOPRIL (FOSINOPRIL) (FOSINOPRIL) [Concomitant]

REACTIONS (4)
  - Feeling abnormal [None]
  - Palpitations [None]
  - Nausea [None]
  - Diarrhoea [None]
